FAERS Safety Report 17975741 (Version 3)
Quarter: 2021Q3

REPORT INFORMATION
  Report Type: Spontaneous
  Country: US (occurrence: US)
  Receive Date: 20200702
  Receipt Date: 20210701
  Transmission Date: 20211014
  Serious: Yes (Hospitalization, Other)
  Sender: FDA-Public Use
  Company Number: US-INDIVIOR EUROPE LIMITED-INDV-125410-2020

PATIENT

DRUGS (9)
  1. CLONAZEPAM. [Concomitant]
     Active Substance: CLONAZEPAM
     Indication: PRODUCT USED FOR UNKNOWN INDICATION
     Dosage: 1 MILLIGRAM, QID
     Route: 065
  2. SUBOXONE [Suspect]
     Active Substance: BUPRENORPHINE HYDROCHLORIDE\NALOXONE HYDROCHLORIDE
     Indication: PAIN
     Dosage: 8 MILLIGRAM, BID (PRIOR 2012)
     Route: 060
  3. SUBOXONE [Suspect]
     Active Substance: BUPRENORPHINE HYDROCHLORIDE\NALOXONE HYDROCHLORIDE
     Dosage: INCREASED UPTO THREE FILMS, UNK
     Route: 060
  4. SUBOXONE [Suspect]
     Active Substance: BUPRENORPHINE HYDROCHLORIDE\NALOXONE HYDROCHLORIDE
     Dosage: WENT BACK TO SUBOXONE, UNK
     Route: 060
  5. SUBOXONE [Suspect]
     Active Substance: BUPRENORPHINE HYDROCHLORIDE\NALOXONE HYDROCHLORIDE
     Dosage: TAKING ONE AND HALF FILMS, UNK
     Route: 060
     Dates: start: 2014
  6. BUPRENORPHINE 8 MG TABLET [Suspect]
     Active Substance: BUPRENORPHINE HYDROCHLORIDE
     Indication: PAIN
     Dosage: UNK
     Route: 065
     Dates: start: 202106
  7. TRAMADOL. [Concomitant]
     Active Substance: TRAMADOL
     Indication: PRODUCT USED FOR UNKNOWN INDICATION
     Dosage: 50 MILLIGRAM, BID
     Route: 065
  8. SUBOXONE [Suspect]
     Active Substance: BUPRENORPHINE HYDROCHLORIDE\NALOXONE HYDROCHLORIDE
     Dosage: NOW DOWN TO TWO FILMS, UNK
     Route: 060
  9. SUBOXONE [Suspect]
     Active Substance: BUPRENORPHINE HYDROCHLORIDE\NALOXONE HYDROCHLORIDE
     Dosage: TAKING TWO FILMS A DAY
     Route: 060
     Dates: end: 202106

REACTIONS (13)
  - Cervical spinal stenosis [Unknown]
  - Intentional underdose [Recovered/Resolved]
  - Intentional product use issue [Recovered/Resolved]
  - Fall [Recovered/Resolved]
  - Skin ulcer [Unknown]
  - Alopecia [Unknown]
  - Off label use [Not Recovered/Not Resolved]
  - Upper limb fracture [Unknown]
  - Neck pain [Unknown]
  - Inappropriate schedule of product administration [Recovered/Resolved]
  - Dysstasia [Unknown]
  - Spinal osteoarthritis [Unknown]
  - Wrong technique in product usage process [Recovered/Resolved]
